FAERS Safety Report 8770567 (Version 5)
Quarter: 2012Q4

REPORT INFORMATION
  Report Type: Report from Study
  Country: JP (occurrence: JP)
  Receive Date: 20120907
  Receipt Date: 20121024
  Transmission Date: 20130627
  Serious: Yes (Hospitalization)
  Sender: FDA-Public Use
  Company Number: JP-B.I. PHARMACEUTICALS,INC./RIDGEFIELD-2012-BP-22071NB

PATIENT
  Age: 69 Year
  Sex: Male
  Weight: 81.5 kg

DRUGS (4)
  1. MICAMLO COMBINATION [Suspect]
     Indication: HYPERTENSION
     Route: 048
     Dates: start: 20110726
  2. NSAIDS [Suspect]
     Route: 048
  3. DEPAS [Concomitant]
     Route: 048
  4. FERROMIA [Concomitant]
     Indication: ANAEMIA
     Dosage: 100 mg
     Route: 048
     Dates: start: 20120602

REACTIONS (3)
  - Rotator cuff syndrome [Recovered/Resolved]
  - Diverticulum intestinal haemorrhagic [Recovered/Resolved]
  - Anaemia [Recovered/Resolved]
